FAERS Safety Report 17356437 (Version 3)
Quarter: 2020Q2

REPORT INFORMATION
  Report Type: Spontaneous
  Country: US (occurrence: US)
  Receive Date: 20200131
  Receipt Date: 20200407
  Transmission Date: 20200713
  Serious: No
  Sender: FDA-Public Use
  Company Number: US-ASTRAZENECA-2020SE12341

PATIENT
  Sex: Male
  Weight: 7.5 kg

DRUGS (2)
  1. SYNAGIS [Suspect]
     Active Substance: PALIVIZUMAB
     Route: 030
  2. SYNAGIS [Suspect]
     Active Substance: PALIVIZUMAB
     Route: 030

REACTIONS (5)
  - Dyspnoea [Unknown]
  - Rash [Unknown]
  - Product dose omission [Unknown]
  - Influenza [Unknown]
  - Malaise [Unknown]
